FAERS Safety Report 21974725 (Version 1)
Quarter: 2023Q1

REPORT INFORMATION
  Report Type: Spontaneous
  Country: US (occurrence: None)
  Receive Date: 20230208
  Receipt Date: 20230208
  Transmission Date: 20230417
  Serious: Yes (Other)
  Sender: FDA-Public Use
  Company Number: None

PATIENT
  Age: 41 Year
  Sex: Male
  Weight: 63 kg

DRUGS (3)
  1. SUBOXONE [Suspect]
     Active Substance: BUPRENORPHINE HYDROCHLORIDE\NALOXONE HYDROCHLORIDE
     Indication: Pain
     Dates: start: 20230201, end: 20230208
  2. SUBOXONE [Suspect]
     Active Substance: BUPRENORPHINE HYDROCHLORIDE\NALOXONE HYDROCHLORIDE
     Indication: Drug dependence
  3. ELIQUIS [Concomitant]
     Active Substance: APIXABAN

REACTIONS (8)
  - Decreased appetite [None]
  - Dysuria [None]
  - Frequent bowel movements [None]
  - Dehydration [None]
  - Arterial stenosis [None]
  - Thrombosis [None]
  - Somnolence [None]
  - Quality of life decreased [None]

NARRATIVE: CASE EVENT DATE: 20230204
